FAERS Safety Report 18990748 (Version 1)
Quarter: 2021Q1

REPORT INFORMATION
  Report Type: Spontaneous
  Country: GB (occurrence: GB)
  Receive Date: 20210310
  Receipt Date: 20210310
  Transmission Date: 20210420
  Serious: Yes (Death, Life-Threatening, Hospitalization, Other)
  Sender: FDA-Public Use
  Company Number: GB-TILLOMED LABORATORIES LTD.-2021-EPL-000683

PATIENT
  Age: 75 Year
  Sex: Male

DRUGS (5)
  1. PREDNISOLONE. [Suspect]
     Active Substance: PREDNISOLONE
     Dosage: 10 MILLIGRAM PER DAY
  2. COTRIMOXAZOLE [Suspect]
     Active Substance: SULFAMETHOXAZOLE\TRIMETHOPRIM
     Indication: PROPHYLAXIS
     Dosage: UNK
  3. TACROLIMUS. [Suspect]
     Active Substance: TACROLIMUS
     Indication: IMMUNOSUPPRESSANT DRUG THERAPY
     Dosage: 1.5 MILLIGRAM PER 12 HOURS
  4. MYCOPHENOLATE MOFETIL. [Suspect]
     Active Substance: MYCOPHENOLATE MOFETIL
     Indication: IMMUNOSUPPRESSANT DRUG THERAPY
     Dosage: 1 GRAM PER 12 HOURS
  5. PREDNISOLONE. [Suspect]
     Active Substance: PREDNISOLONE
     Indication: IMMUNOSUPPRESSANT DRUG THERAPY
     Dosage: 5 MILLIGRAM DAILY

REACTIONS (21)
  - Condition aggravated [Fatal]
  - Dehydration [Fatal]
  - Hypotension [Fatal]
  - Sepsis [Fatal]
  - Delirium [Fatal]
  - Splenomegaly [Fatal]
  - Acute kidney injury [Fatal]
  - Renal impairment [Fatal]
  - Cardiac arrest [Recovered/Resolved]
  - Tachypnoea [Fatal]
  - Hepatic failure [Fatal]
  - Transaminases increased [Fatal]
  - Multiple organ dysfunction syndrome [Fatal]
  - Tachycardia [Fatal]
  - Pancytopenia [Fatal]
  - Adenovirus infection [Fatal]
  - Ischaemia [Fatal]
  - Hypovolaemia [Fatal]
  - Haemophagocytic lymphohistiocytosis [Fatal]
  - Coagulopathy [Fatal]
  - Gastroenteritis adenovirus [Fatal]
